FAERS Safety Report 15256829 (Version 2)
Quarter: 2018Q3

REPORT INFORMATION
  Report Type: Report from Study
  Country: None (occurrence: CZ)
  Receive Date: 20180808
  Receipt Date: 20180824
  Transmission Date: 20181010
  Serious: Yes (Hospitalization)
  Sender: FDA-Public Use
  Company Number: CZ-ABBVIE-18P-217-2437097-00

PATIENT
  Age: 80 Year
  Sex: Female
  Weight: 68 kg

DRUGS (52)
  1. ALLOPURINOL. [Concomitant]
     Active Substance: ALLOPURINOL
     Indication: PROPHYLAXIS
     Route: 048
     Dates: start: 20180124, end: 20180124
  2. AFITEN [Concomitant]
     Route: 048
     Dates: start: 20180126, end: 20180126
  3. CARZAP HCT [Concomitant]
     Indication: HYPERTENSION
     Dosage: 16/12.5MG
     Route: 048
     Dates: start: 2007, end: 20180223
  4. DEGAN [Concomitant]
     Active Substance: METOCLOPRAMIDE HYDROCHLORIDE
     Dosage: RECOMMENDED TID
     Route: 048
     Dates: start: 20180409
  5. HYDROCORTISON [Concomitant]
     Active Substance: HYDROCORTISONE
     Route: 042
     Dates: start: 20180723, end: 20180723
  6. HYDROCORTISON [Concomitant]
     Active Substance: HYDROCORTISONE
     Route: 042
     Dates: start: 20180731, end: 20180731
  7. KALNORMIN [Concomitant]
     Active Substance: POTASSIUM CHLORIDE
     Route: 048
     Dates: start: 20180221, end: 20180221
  8. KALNORMIN [Concomitant]
     Active Substance: POTASSIUM CHLORIDE
     Route: 048
     Dates: start: 20180723, end: 20180803
  9. AZACITIDINE. [Suspect]
     Active Substance: AZACITIDINE
     Indication: ACUTE MYELOID LEUKAEMIA
     Dosage: DAYS 1?7 OF EACH 28?DAY CYCLE
     Route: 058
     Dates: start: 20180125
  10. BISEPTOL [Concomitant]
     Active Substance: SULFAMETHOXAZOLE\TRIMETHOPRIM
     Indication: ANTIFUNGAL PROPHYLAXIS
     Route: 048
     Dates: start: 20180109
  11. HYDROCORTISON [Concomitant]
     Active Substance: HYDROCORTISONE
     Route: 042
     Dates: start: 20180427, end: 20180427
  12. HYDROCORTISON [Concomitant]
     Active Substance: HYDROCORTISONE
     Route: 040
     Dates: start: 20180606, end: 20180606
  13. HYDROCORTISON [Concomitant]
     Active Substance: HYDROCORTISONE
     Route: 042
     Dates: start: 20180625, end: 20180625
  14. ALLOPURINOL. [Concomitant]
     Active Substance: ALLOPURINOL
     Route: 048
     Dates: start: 20180125, end: 20180129
  15. HYDROCORTISON [Concomitant]
     Active Substance: HYDROCORTISONE
     Indication: TRANSFUSION
     Route: 042
     Dates: start: 20180322, end: 20180322
  16. HYDROCORTISON [Concomitant]
     Active Substance: HYDROCORTISONE
     Route: 042
     Dates: start: 20180330, end: 20180330
  17. HYDROCORTISON [Concomitant]
     Active Substance: HYDROCORTISONE
     Route: 042
     Dates: start: 20180727, end: 20180727
  18. LACTULOSA [Concomitant]
     Active Substance: LACTULOSE
     Indication: CONSTIPATION PROPHYLAXIS
     Route: 048
     Dates: start: 20180127, end: 20180129
  19. BETAHISTINI DIHYDROCHLORIDUM [Concomitant]
     Indication: VERTIGO
     Route: 048
     Dates: start: 2017
  20. HYDROCORTISON [Concomitant]
     Active Substance: HYDROCORTISONE
     Route: 042
     Dates: start: 20180411, end: 20180411
  21. KALNORMIN [Concomitant]
     Active Substance: POTASSIUM CHLORIDE
     Indication: PROPHYLAXIS
     Route: 048
     Dates: start: 20180118, end: 20180125
  22. MYCOMAX [Concomitant]
     Active Substance: FLUCONAZOLE
     Indication: ANTIFUNGAL PROPHYLAXIS
     Route: 048
     Dates: start: 20180109, end: 20180109
  23. NOLPAZA [Concomitant]
     Active Substance: PANTOPRAZOLE SODIUM
     Indication: PROPHYLAXIS
     Route: 048
     Dates: start: 20180109, end: 20180807
  24. SERTRALINE [Concomitant]
     Active Substance: SERTRALINE HYDROCHLORIDE
     Indication: ANTIDEPRESSANT THERAPY
  25. XALOPTIC [Concomitant]
     Indication: GLAUCOMA
     Route: 047
     Dates: start: 201705
  26. VENETOCLAX. [Suspect]
     Active Substance: VENETOCLAX
     Route: 048
     Dates: start: 20180127
  27. AFITEN [Concomitant]
     Indication: HYPERTENSION
     Route: 048
     Dates: start: 2007, end: 20180125
  28. AFITEN [Concomitant]
     Route: 048
     Dates: start: 20180507, end: 20180804
  29. SIMBRINZA [Concomitant]
     Active Substance: BRIMONIDINE TARTRATE\BRINZOLAMIDE
     Indication: GLAUCOMA
     Route: 047
     Dates: start: 201705
  30. VENETOCLAX. [Suspect]
     Active Substance: VENETOCLAX
     Indication: ACUTE MYELOID LEUKAEMIA
     Route: 048
     Dates: start: 20180125, end: 20180125
  31. CARZAP HCT [Concomitant]
     Dosage: 16/12.5MG
     Route: 048
     Dates: start: 20180409, end: 20180804
  32. HYDROCORTISON [Concomitant]
     Active Substance: HYDROCORTISONE
     Route: 048
     Dates: start: 20180720, end: 20180720
  33. KALNORMIN [Concomitant]
     Active Substance: POTASSIUM CHLORIDE
     Route: 048
     Dates: start: 20180606, end: 20180722
  34. MYCOMAX [Concomitant]
     Active Substance: FLUCONAZOLE
     Route: 048
     Dates: start: 20180110
  35. SERTRALINE [Concomitant]
     Active Substance: SERTRALINE HYDROCHLORIDE
     Indication: ANXIOLYTIC THERAPY
     Route: 048
     Dates: start: 201412
  36. SYMBICORT [Concomitant]
     Active Substance: BUDESONIDE\FORMOTEROL FUMARATE DIHYDRATE
     Indication: VIRAL INFECTION
     Route: 055
     Dates: start: 20180418
  37. VENETOCLAX. [Suspect]
     Active Substance: VENETOCLAX
     Route: 048
     Dates: start: 20180126, end: 20180126
  38. HYDROCORTISON [Concomitant]
     Active Substance: HYDROCORTISONE
     Route: 042
     Dates: start: 20180328, end: 20180328
  39. HYDROCORTISON [Concomitant]
     Active Substance: HYDROCORTISONE
     Route: 042
     Dates: start: 20180711, end: 20180711
  40. HYDROCORTISON [Concomitant]
     Active Substance: HYDROCORTISONE
     Route: 042
     Dates: start: 20180718, end: 20180718
  41. KALNORMIN [Concomitant]
     Active Substance: POTASSIUM CHLORIDE
     Indication: HYPOKALAEMIA
     Route: 048
     Dates: start: 20180125, end: 20180220
  42. KALNORMIN [Concomitant]
     Active Substance: POTASSIUM CHLORIDE
     Route: 048
     Dates: start: 20180412, end: 20180414
  43. KALNORMIN [Concomitant]
     Active Substance: POTASSIUM CHLORIDE
     Route: 048
     Dates: start: 20180415, end: 20180605
  44. LACTULOSA [Concomitant]
     Active Substance: LACTULOSE
     Route: 048
     Dates: start: 20180223
  45. CARZAP HCT [Concomitant]
     Dosage: 16/12.5MG
     Route: 048
     Dates: start: 20180224, end: 20180408
  46. DEGAN [Concomitant]
     Active Substance: METOCLOPRAMIDE HYDROCHLORIDE
     Indication: PROPHYLAXIS OF NAUSEA AND VOMITING
     Route: 048
     Dates: start: 20180125, end: 20180125
  47. DEGAN [Concomitant]
     Active Substance: METOCLOPRAMIDE HYDROCHLORIDE
     Indication: PROPHYLAXIS OF NAUSEA AND VOMITING
     Route: 048
     Dates: start: 20180126, end: 20180201
  48. DEGAN [Concomitant]
     Active Substance: METOCLOPRAMIDE HYDROCHLORIDE
     Route: 048
     Dates: start: 20180202, end: 20180313
  49. HYDROCORTISON [Concomitant]
     Active Substance: HYDROCORTISONE
     Indication: ALLERGY PROPHYLAXIS
     Route: 042
     Dates: start: 20180326, end: 20180326
  50. HYDROCORTISON [Concomitant]
     Active Substance: HYDROCORTISONE
     Route: 042
     Dates: start: 20180525, end: 20180525
  51. HYDROCORTISON [Concomitant]
     Active Substance: HYDROCORTISONE
     Route: 042
     Dates: start: 20180629, end: 20180629
  52. HYDROCORTISON [Concomitant]
     Active Substance: HYDROCORTISONE
     Route: 042
     Dates: start: 20180703, end: 20180703

REACTIONS (1)
  - Gastrointestinal infection [Recovered/Resolved]

NARRATIVE: CASE EVENT DATE: 20180731
